FAERS Safety Report 25231234 (Version 1)
Quarter: 2025Q2

REPORT INFORMATION
  Report Type: Report from Study
  Country: KR (occurrence: KR)
  Receive Date: 20250423
  Receipt Date: 20250423
  Transmission Date: 20250717
  Serious: Yes (Other)
  Sender: ALEXION PHARMACEUTICALS
  Company Number: KR-AstraZeneca-CH-00850482A

PATIENT

DRUGS (1)
  1. SELUMETINIB [Suspect]
     Active Substance: SELUMETINIB
     Route: 065

REACTIONS (5)
  - Kawasaki^s disease [Unknown]
  - Dry skin [Unknown]
  - Epistaxis [Unknown]
  - Paronychia [Unknown]
  - Stomatitis [Unknown]
